FAERS Safety Report 16297259 (Version 2)
Quarter: 2019Q3

REPORT INFORMATION
  Report Type: Spontaneous
  Country: US (occurrence: US)
  Receive Date: 20190510
  Receipt Date: 20190715
  Transmission Date: 20191004
  Serious: No
  Sender: FDA-Public Use
  Company Number: US-ALK-ABELLO A/S-2019AA000785

PATIENT

DRUGS (1)
  1. TAE BULK 413 (CANDIDA ALBICANS) [Suspect]
     Active Substance: CANDIDA ALBICANS
     Indication: PRODUCT USED FOR UNKNOWN INDICATION

REACTIONS (5)
  - Oedema peripheral [Recovered/Resolved]
  - Skin papilloma [Recovered/Resolved]
  - Erythema [Recovered/Resolved]
  - Product administered at inappropriate site [Unknown]
  - Injection site inflammation [Recovered/Resolved]
